FAERS Safety Report 20505125 (Version 3)
Quarter: 2022Q1

REPORT INFORMATION
  Report Type: Spontaneous
  Country: US (occurrence: US)
  Receive Date: 20220223
  Receipt Date: 20220325
  Transmission Date: 20220423
  Serious: Yes (Hospitalization)
  Sender: FDA-Public Use
  Company Number: US-HETERO-HET2022US00413

PATIENT
  Sex: Female

DRUGS (3)
  1. LOSARTAN [Suspect]
     Active Substance: LOSARTAN
     Indication: Product used for unknown indication
     Dosage: BOTTLE OF 30 TABLETS
     Route: 065
     Dates: end: 20220218
  2. FLAGYL                             /00012501/ [Concomitant]
     Indication: Gastric disorder
     Dosage: UNK
     Route: 065
  3. AMOXYCILLIN                        /00249601/ [Concomitant]
     Indication: Gastric disorder
     Dosage: UNK
     Route: 065

REACTIONS (7)
  - Oral discomfort [Recovering/Resolving]
  - Groin pain [Recovering/Resolving]
  - Oesophageal pain [Recovering/Resolving]
  - Dyspepsia [Recovering/Resolving]
  - Nausea [Recovering/Resolving]
  - Abdominal pain [Recovering/Resolving]
  - Product substitution issue [Unknown]
